FAERS Safety Report 13694201 (Version 1)
Quarter: 2017Q2

REPORT INFORMATION
  Report Type: Spontaneous
  Country: US (occurrence: US)
  Receive Date: 20170627
  Receipt Date: 20170627
  Transmission Date: 20170830
  Serious: Yes (Life-Threatening, Hospitalization, Disabling)
  Sender: FDA-Public Use
  Company Number: None

PATIENT
  Age: 22 Year
  Sex: Female
  Weight: 83.25 kg

DRUGS (3)
  1. OMEGA 3^S [Concomitant]
  2. KLONOPIN [Suspect]
     Active Substance: CLONAZEPAM
     Indication: DRUG THERAPY
     Route: 048
     Dates: start: 20160703, end: 20160925
  3. BASIC VITAMINS [Concomitant]

REACTIONS (18)
  - Akathisia [None]
  - Bedridden [None]
  - Suicidal ideation [None]
  - Photophobia [None]
  - Tremor [None]
  - Hallucination [None]
  - Screaming [None]
  - Constipation [None]
  - Vision blurred [None]
  - Stress [None]
  - Insomnia [None]
  - Mental status changes [None]
  - Derealisation [None]
  - Bipolar disorder [None]
  - Paranoia [None]
  - Depersonalisation/derealisation disorder [None]
  - Abdominal distension [None]
  - Panic attack [None]

NARRATIVE: CASE EVENT DATE: 20160703
